FAERS Safety Report 9366999 (Version 1)
Quarter: 2013Q2

REPORT INFORMATION
  Report Type: Report from Study
  Country: MX (occurrence: MX)
  Receive Date: 20130625
  Receipt Date: 20130625
  Transmission Date: 20140414
  Serious: Yes (Disabling, Other)
  Sender: FDA-Public Use
  Company Number: MX-ABBOTT-13P-107-1087926-00

PATIENT
  Age: 58 Year
  Sex: Female
  Weight: 69 kg

DRUGS (8)
  1. HUMIRA [Suspect]
     Indication: RHEUMATOID ARTHRITIS
     Route: 058
     Dates: start: 201201
  2. METHOTREXATE [Concomitant]
     Indication: ARTHRITIS
     Dosage: 8/WEEK
     Route: 048
     Dates: start: 2010
  3. METHOTREXATE [Concomitant]
     Indication: ARTHRITIS
     Dosage: 4/WEEK
     Route: 048
     Dates: start: 2013
  4. DICLOFENAC [Concomitant]
     Indication: INFLAMMATION
     Dosage: 2/DAY
     Route: 048
     Dates: start: 2013
  5. OMEPRAZOLE [Concomitant]
     Indication: DYSPEPSIA
     Dosage: 1/24H
     Route: 048
     Dates: start: 2010
  6. COMPLEX B [Concomitant]
     Indication: PAIN
     Dosage: 1/24H
     Route: 048
     Dates: start: 2010
  7. PARACETAMOL [Concomitant]
     Indication: PAIN
     Dosage: 3/DAY
     Route: 048
     Dates: start: 2010
  8. FOLIC ACID [Concomitant]
     Indication: VITAMIN SUPPLEMENTATION
     Dosage: 1/DAY
     Route: 048
     Dates: start: 2011

REACTIONS (4)
  - Fatigue [Recovered/Resolved]
  - Diarrhoea [Recovered/Resolved]
  - Vomiting [Recovered/Resolved]
  - Nausea [Recovered/Resolved]
